FAERS Safety Report 5958713-6 (Version None)
Quarter: 2008Q4

REPORT INFORMATION
  Report Type: 
  Country: None (occurrence: None)
  Receive Date: 20081119
  Receipt Date: 20081111
  Transmission Date: 20090506
  Serious: No
  Sender: FDA-Public Use
  Company Number: US-B.I. PHARMACEUTICALS,INC./RIDGEFIELD-2008-BP-15229BP

PATIENT
  Sex: Female

DRUGS (5)
  1. SPIRIVA [Suspect]
     Indication: ASTHMA
     Dosage: 18MCG
     Route: 055
     Dates: start: 20080902, end: 20080926
  2. PULMICORT-100 [Concomitant]
  3. ALLEGRA [Concomitant]
  4. TRIAMTEREN HCTZ [Concomitant]
  5. PRILOSEC [Concomitant]

REACTIONS (4)
  - BRONCHITIS [None]
  - CAUSTIC INJURY [None]
  - COUGH [None]
  - THROAT IRRITATION [None]
